FAERS Safety Report 5683468-2 (Version None)
Quarter: 2008Q1

REPORT INFORMATION
  Report Type: 
  Country: None (occurrence: None)
  Receive Date: 20080326
  Receipt Date: 20080314
  Transmission Date: 20080703
  Serious: Yes (Hospitalization)
  Sender: FDA-Public Use
  Company Number: E2020-02454-CLI-JP

PATIENT
  Age: 73 Year
  Sex: Female

DRUGS (3)
  1. DONEPEZIL HCL [Suspect]
     Indication: DEMENTIA
     Dosage: DOUBLE BLIND, 1 IN 1 D, ORAL; DOUBLE BLIND, 1 IN 1 D, ORAL; 1 IN 1 D, ORAL
     Route: 048
     Dates: start: 20080213, end: 20080227
  2. DONEPEZIL HCL [Suspect]
     Indication: DEMENTIA
     Dosage: DOUBLE BLIND, 1 IN 1 D, ORAL; DOUBLE BLIND, 1 IN 1 D, ORAL; 1 IN 1 D, ORAL
     Route: 048
     Dates: start: 20080228, end: 20080305
  3. DONEPEZIL HCL [Suspect]
     Indication: DEMENTIA
     Dosage: DOUBLE BLIND, 1 IN 1 D, ORAL; DOUBLE BLIND, 1 IN 1 D, ORAL; 1 IN 1 D, ORAL
     Route: 048
     Dates: start: 20080306

REACTIONS (4)
  - CONDITION AGGRAVATED [None]
  - DIABETIC NEUROPATHY [None]
  - HALLUCINATION, VISUAL [None]
  - PAIN IN EXTREMITY [None]
